FAERS Safety Report 6873300-3 (Version None)
Quarter: 2010Q3

REPORT INFORMATION
  Report Type: 
  Country: None (occurrence: None)
  Receive Date: 20100721
  Receipt Date: 20100709
  Transmission Date: 20110219
  Serious: Yes (Hospitalization, Other)
  Sender: FDA-Public Use
  Company Number: 2009AC000510

PATIENT
  Age: 50 Year
  Sex: Female

DRUGS (12)
  1. DIGOXIN [Suspect]
     Dosage: 0.125 MG; QD; PO
     Route: 048
     Dates: start: 20070801, end: 20090301
  2. DIGOXIN [Suspect]
     Indication: SUPRAVENTRICULAR TACHYCARDIA
     Dosage: 0.125 MG; PO
     Route: 048
     Dates: start: 20050801
  3. DIGOXIN [Suspect]
     Dosage: 0.250 MG; QD; PO
     Route: 048
     Dates: start: 20070601, end: 20070801
  4. ATENOLOL [Concomitant]
  5. HYDROCODONE BITARTRATE [Concomitant]
  6. SKELAXIN [Concomitant]
  7. MIDRIN [Concomitant]
  8. GABAPENTIN [Concomitant]
  9. ZANTAC [Concomitant]
  10. SYNTHROID [Concomitant]
  11. LEXAPRO [Concomitant]
  12. ADENOSINE [Concomitant]

REACTIONS (8)
  - CARDIAC FLUTTER [None]
  - CONJUNCTIVAL HAEMORRHAGE [None]
  - ECONOMIC PROBLEM [None]
  - HEADACHE [None]
  - HYPOTHYROIDISM [None]
  - INJURY [None]
  - NAUSEA [None]
  - PARAESTHESIA [None]
